FAERS Safety Report 7427286-3 (Version None)
Quarter: 2011Q2

REPORT INFORMATION
  Report Type: 
  Country: None (occurrence: None)
  Receive Date: 20110420
  Receipt Date: 20110415
  Transmission Date: 20111010
  Serious: No
  Sender: FDA-Public Use
  Company Number: US-PFIZER INC-2011083538

PATIENT
  Sex: Female
  Weight: 60.3 kg

DRUGS (1)
  1. CAMPTOSAR [Suspect]
     Indication: PANCREATIC CARCINOMA METASTATIC
     Dosage: 230 MG, UNK
     Route: 042
     Dates: start: 20110317, end: 20110413

REACTIONS (1)
  - TONGUE DISORDER [None]
